FAERS Safety Report 12435260 (Version 1)
Quarter: 2016Q2

REPORT INFORMATION
  Report Type: Spontaneous
  Country: US (occurrence: US)
  Receive Date: 20160603
  Receipt Date: 20160603
  Transmission Date: 20160815
  Serious: No
  Sender: FDA-Public Use
  Company Number: US-ROCHE-1416767

PATIENT
  Sex: Male

DRUGS (6)
  1. CLONAZEPAM (TEVA PHARM) [Suspect]
     Active Substance: CLONAZEPAM
     Indication: PANIC DISORDER
     Route: 048
     Dates: start: 20140609
  2. KLONOPIN [Suspect]
     Active Substance: CLONAZEPAM
     Indication: PANIC DISORDER
     Route: 048
     Dates: start: 20140609
  3. KLONOPIN [Suspect]
     Active Substance: CLONAZEPAM
     Indication: ANXIETY
     Route: 065
  4. KLONOPIN [Suspect]
     Active Substance: CLONAZEPAM
     Route: 065
  5. KLONOPIN [Suspect]
     Active Substance: CLONAZEPAM
     Indication: OBSESSIVE-COMPULSIVE DISORDER
     Route: 065
  6. ATIVAN [Concomitant]
     Active Substance: LORAZEPAM
     Indication: ANXIETY DISORDER
     Dosage: 3-4 MG  PRN
     Route: 065

REACTIONS (18)
  - Dysgraphia [Unknown]
  - Aphasia [Unknown]
  - Drug ineffective [Unknown]
  - Malaise [Unknown]
  - Product quality issue [Unknown]
  - Anaemia [Unknown]
  - Decreased appetite [Recovering/Resolving]
  - Headache [Not Recovered/Not Resolved]
  - Memory impairment [Not Recovered/Not Resolved]
  - Nausea [Recovering/Resolving]
  - Drug dose omission [Unknown]
  - Abdominal discomfort [Not Recovered/Not Resolved]
  - Incorrect dosage administered [Unknown]
  - Fatigue [Unknown]
  - Amnesia [Unknown]
  - Pyrexia [Unknown]
  - Anxiety [Unknown]
  - Drug effect decreased [Unknown]
